FAERS Safety Report 4279932-3 (Version None)
Quarter: 2004Q1

REPORT INFORMATION
  Report Type: 
  Country: None (occurrence: None)
  Receive Date: 20040126
  Receipt Date: 20040121
  Transmission Date: 20041129
  Serious: Yes (Life-Threatening)
  Sender: FDA-Public Use
  Company Number: 2003IC000614

PATIENT
  Age: 57 Year
  Sex: Male

DRUGS (9)
  1. FLUOROURACIL [Suspect]
     Indication: OESOPHAGEAL CARCINOMA
     Dosage: 1125 MG; UNKNOWN; INTRAVENOUS DRIP (SEE IMAGE)
     Route: 041
     Dates: start: 20030818, end: 20030822
  2. FLUOROURACIL [Suspect]
     Indication: OESOPHAGEAL CARCINOMA
     Dosage: 1125 MG; UNKNOWN; INTRAVENOUS DRIP (SEE IMAGE)
     Route: 041
     Dates: start: 20030922, end: 20030926
  3. RANDA [Concomitant]
  4. RANDA [Concomitant]
  5. NASEA [Concomitant]
  6. DECADRON [Concomitant]
  7. SOLITA T [Concomitant]
  8. ISOTONIC SODIUM CHLORIDE SOLUTION [Concomitant]
  9. HIGH CALORIC SOLUTION CONTAINING ELECTROLYTES, GLUCOSE AND AMINO ACIDS [Concomitant]

REACTIONS (7)
  - CONDITION AGGRAVATED [None]
  - HYPERAMMONAEMIA [None]
  - NAUSEA [None]
  - RENAL FAILURE [None]
  - RESTLESSNESS [None]
  - URINE OUTPUT INCREASED [None]
  - VOMITING [None]
